FAERS Safety Report 19030865 (Version 1)
Quarter: 2021Q1

REPORT INFORMATION
  Report Type: Spontaneous
  Country: US (occurrence: US)
  Receive Date: 20210319
  Receipt Date: 20210319
  Transmission Date: 20210420
  Serious: Yes (Life-Threatening, Hospitalization)
  Sender: FDA-Public Use
  Company Number: None

PATIENT
  Age: 15 Year
  Sex: Male
  Weight: 74.25 kg

DRUGS (2)
  1. SINGULAIR [Suspect]
     Active Substance: MONTELUKAST SODIUM
     Indication: ASTHMA
     Dates: start: 19980101, end: 20051201
  2. CLARITIN [Concomitant]
     Active Substance: LORATADINE

REACTIONS (3)
  - Anxiety [None]
  - Depression [None]
  - Suicidal behaviour [None]

NARRATIVE: CASE EVENT DATE: 20050901
